FAERS Safety Report 8801883 (Version 3)
Quarter: 2013Q4

REPORT INFORMATION
  Report Type: Report from Study
  Country: DE (occurrence: DE)
  Receive Date: 20120921
  Receipt Date: 20131022
  Transmission Date: 20140711
  Serious: Yes (Other)
  Sender: FDA-Public Use
  Company Number: DE-UCBSA-066261

PATIENT
  Sex: Female
  Weight: 61 kg

DRUGS (19)
  1. CERTOLIZUMAB PEGOL [Suspect]
     Indication: RHEUMATOID ARTHRITIS
     Route: 058
     Dates: start: 20100823
  2. PREDNISOLONE [Concomitant]
     Indication: RHEUMATOID ARTHRITIS
     Dates: start: 20100728, end: 20100807
  3. PREDNISOLONE [Concomitant]
     Indication: RHEUMATOID ARTHRITIS
     Dates: start: 20100808, end: 20100831
  4. PREDNISOLONE [Concomitant]
     Indication: RHEUMATOID ARTHRITIS
     Dates: start: 20100901, end: 20100930
  5. PREDNISOLONE [Concomitant]
     Indication: RHEUMATOID ARTHRITIS
     Dates: start: 20101001, end: 20101004
  6. PREDNISOLONE [Concomitant]
     Indication: RHEUMATOID ARTHRITIS
     Dates: start: 20111205
  7. BISOPROLOL [Concomitant]
     Indication: HYPERTENSION
     Dates: start: 2007
  8. DEKRISTOL [Concomitant]
     Indication: VITAMIN D DEFICIENCY
     Dosage: 20000 IU BIM
     Dates: start: 20101217
  9. RISEDRONAT [Concomitant]
     Indication: OSTEOPOROSIS
     Dosage: QS, SUFFICIENT QUANTITY
     Dates: start: 20110408
  10. METFORMIN [Concomitant]
     Indication: TYPE 2 DIABETES MELLITUS
     Dates: start: 20110408
  11. ARCOXIA [Concomitant]
     Indication: RHEUMATOID ARTHRITIS
     Dosage: 60 MG
     Dates: start: 20101217
  12. ASS [Concomitant]
     Indication: CEREBROVASCULAR DISORDER
     Dates: start: 200702
  13. ASS [Concomitant]
     Indication: ARTERIOSCLEROSIS
     Dates: start: 200702
  14. L-THYROXINE [Concomitant]
     Indication: HYPOTHYROIDISM
     Dates: start: 20110704
  15. AMITRIPTYLINE [Concomitant]
     Indication: DEPRESSION
     Dates: start: 20060607
  16. AMLODIPINE [Concomitant]
     Indication: HYPERTENSION
     Dates: start: 20110704
  17. CALCIMAGON VITAMIN D/CALCIUM RICH NUTRITION [Concomitant]
     Indication: OSTEOPOROSIS
     Dates: start: 200606
  18. HYDROCHLOROTHIAZIDE [Concomitant]
     Indication: OEDEMA
     Dates: start: 201107
  19. TARGIN [Concomitant]
     Indication: OSTEOPOROSIS
     Dates: start: 200905

REACTIONS (1)
  - Gout [Unknown]
